FAERS Safety Report 12254580 (Version 2)
Quarter: 2016Q2

REPORT INFORMATION
  Report Type: Spontaneous
  Country: FR (occurrence: FR)
  Receive Date: 20160411
  Receipt Date: 20160629
  Transmission Date: 20160815
  Serious: Yes (Hospitalization)
  Sender: FDA-Public Use
  Company Number: FR-MYLANLABS-2016M1014836

PATIENT

DRUGS (1)
  1. FONDAPARINUX [Suspect]
     Active Substance: FONDAPARINUX
     Indication: THROMBOPHLEBITIS
     Dosage: 7.5 MG, QD
     Route: 058
     Dates: start: 20151025, end: 20151102

REACTIONS (2)
  - Abdominal pain lower [Unknown]
  - Haematoma [Unknown]

NARRATIVE: CASE EVENT DATE: 20151102
